FAERS Safety Report 5075716-7 (Version None)
Quarter: 2006Q3

REPORT INFORMATION
  Report Type: 
  Country: None (occurrence: None)
  Receive Date: 20060807
  Receipt Date: 20060807
  Transmission Date: 20061208
  Serious: Yes (Hospitalization)
  Sender: FDA-Public Use
  Company Number: None

PATIENT
  Age: 71 Year
  Sex: Female

DRUGS (1)
  1. ULTRAVIST 300 [Suspect]
     Dosage: X1 DOSE IV
     Route: 042
     Dates: start: 20060315

REACTIONS (4)
  - ANAPHYLACTIC SHOCK [None]
  - ASTHENIA [None]
  - ERYTHEMA [None]
  - EYE ROLLING [None]
